APPROVED DRUG PRODUCT: SULFINPYRAZONE
Active Ingredient: SULFINPYRAZONE
Strength: 100MG
Dosage Form/Route: TABLET;ORAL
Application: A087667 | Product #001
Applicant: WATSON LABORATORIES INC
Approved: May 26, 1982 | RLD: No | RS: No | Type: DISCN